FAERS Safety Report 5794755-1 (Version None)
Quarter: 2008Q2

REPORT INFORMATION
  Report Type: 
  Country: None (occurrence: None)
  Receive Date: 20080630
  Receipt Date: 20080618
  Transmission Date: 20081010
  Serious: Yes (Death, Hospitalization)
  Sender: FDA-Public Use
  Company Number: JP-AMGEN-US283061

PATIENT
  Sex: Female
  Weight: 45 kg

DRUGS (17)
  1. ENBREL [Suspect]
     Indication: RHEUMATOID ARTHRITIS
     Route: 058
     Dates: start: 20070906, end: 20071029
  2. ENBREL [Suspect]
     Dates: start: 20071029, end: 20080101
  3. ENBREL [Suspect]
     Dosage: 25 MG ONCE EVERY 7 TO 10 DAYS
     Dates: start: 20080101, end: 20080416
  4. PREDNISOLONE [Suspect]
     Route: 048
     Dates: start: 20010501
  5. PREDNISOLONE [Suspect]
     Dosage: BETWEN 5 AND 10 MG PER DAY
     Route: 048
     Dates: start: 20010501
  6. ISCOTIN [Concomitant]
     Route: 048
     Dates: start: 20051023
  7. ISCOTIN [Concomitant]
     Route: 048
     Dates: start: 20070906
  8. GLAKAY [Concomitant]
     Route: 048
     Dates: start: 20070822
  9. FAMOTIDINE [Concomitant]
     Indication: REFLUX OESOPHAGITIS
     Route: 048
     Dates: start: 20071112
  10. PYDOXAL [Concomitant]
     Route: 048
     Dates: start: 20070913
  11. RABEPRAZOLE SODIUM [Concomitant]
     Indication: REFLUX OESOPHAGITIS
     Route: 048
     Dates: start: 20071001, end: 20071008
  12. RABEPRAZOLE SODIUM [Concomitant]
     Route: 048
     Dates: start: 20071009, end: 20071111
  13. MAALOX [Concomitant]
     Indication: REFLUX OESOPHAGITIS
     Route: 048
     Dates: start: 20071004, end: 20071104
  14. MAALOX [Concomitant]
     Route: 048
     Dates: start: 20071105
  15. FOSAMAX [Concomitant]
     Indication: OSTEOPOROSIS
     Dates: start: 20051025, end: 20071028
  16. FOSAMAX [Concomitant]
     Route: 048
     Dates: start: 20071029
  17. PYRIDOXINE HYDROCHLORIDE [Concomitant]

REACTIONS (4)
  - ACUTE RESPIRATORY DISTRESS SYNDROME [None]
  - CONDITION AGGRAVATED [None]
  - DISSEMINATED TUBERCULOSIS [None]
  - INTERSTITIAL LUNG DISEASE [None]
